FAERS Safety Report 7942944-X (Version None)
Quarter: 2011Q4

REPORT INFORMATION
  Report Type: 
  Country: None (occurrence: None)
  Receive Date: 20111128
  Receipt Date: 20111123
  Transmission Date: 20120403
  Serious: Yes (Hospitalization)
  Sender: FDA-Public Use
  Company Number: CH-MERCK-1111USA03238

PATIENT
  Age: 74 Year
  Sex: Female

DRUGS (3)
  1. FOSAMAX [Suspect]
     Route: 048
     Dates: start: 20000101, end: 20080101
  2. CALCIMAGON D3 [Concomitant]
     Route: 048
  3. BONIVA [Suspect]
     Route: 048
     Dates: start: 20080101, end: 20111101

REACTIONS (1)
  - LOWER LIMB FRACTURE [None]
